FAERS Safety Report 12924826 (Version 2)
Quarter: 2016Q4

REPORT INFORMATION
  Report Type: Report from Study
  Country: US (occurrence: US)
  Receive Date: 20161108
  Receipt Date: 20161118
  Transmission Date: 20170207
  Serious: Yes (Hospitalization)
  Sender: FDA-Public Use
  Company Number: US-ACTELION-A-US2016-145081

PATIENT
  Age: 43 Year
  Sex: Female

DRUGS (1)
  1. VELETRI [Suspect]
     Active Substance: EPOPROSTENOL
     Indication: PULMONARY HYPERTENSION
     Dosage: 26.75 NG/KG, PER MIN
     Route: 042
     Dates: start: 20160229

REACTIONS (2)
  - Fluid overload [Recovering/Resolving]
  - Upper respiratory tract infection [Recovering/Resolving]
